FAERS Safety Report 8890586 (Version 5)
Quarter: 2013Q1

REPORT INFORMATION
  Report Type: Report from Study
  Country: TW (occurrence: TW)
  Receive Date: 20121106
  Receipt Date: 20130201
  Transmission Date: 20140127
  Serious: Yes (Other)
  Sender: FDA-Public Use
  Company Number: TW-009507513-1210TWN014411

PATIENT
  Age: 55 Year
  Sex: Female
  Weight: 74.5 kg

DRUGS (7)
  1. BOCEPREVIR [Suspect]
     Indication: CHRONIC HEPATITIS C
     Dosage: UNK
     Route: 048
     Dates: start: 20120712, end: 20121029
  2. BOCEPREVIR [Suspect]
     Dosage: UNK
     Dates: start: 20121106, end: 20121109
  3. PEG-INTRON [Suspect]
     Indication: CHRONIC HEPATITIS C
     Dosage: 120 MICROGRAM, QW
     Route: 058
     Dates: start: 20120712, end: 20121029
  4. PEG-INTRON [Suspect]
     Dosage: UNK
     Dates: start: 20121108, end: 20121109
  5. RIBAVIRIN [Suspect]
     Indication: CHRONIC HEPATITIS C
     Dosage: 1000 MG, QD
     Route: 048
     Dates: start: 20121009, end: 20121029
  6. RIBAVIRIN [Suspect]
     Dosage: 1200 MG, QD
     Route: 048
     Dates: start: 20120712, end: 20121008
  7. RIBAVIRIN [Suspect]
     Dosage: UNK
     Dates: start: 20121106, end: 20121109

REACTIONS (1)
  - Headache [Recovered/Resolved]
